FAERS Safety Report 4828846-6 (Version None)
Quarter: 2005Q4

REPORT INFORMATION
  Report Type: 
  Country: None (occurrence: None)
  Receive Date: 20051014
  Receipt Date: 20050622
  Transmission Date: 20060501
  Serious: No
  Sender: FDA-Public Use
  Company Number: 2005SP001152

PATIENT
  Age: 46 Year
  Sex: Male
  Weight: 149.687 kg

DRUGS (7)
  1. LUNESTA [Suspect]
     Indication: INSOMNIA
     Dosage: 2 MG; HS; ORAL, 3 MG; HS; ORAL
     Route: 048
     Dates: start: 20050527, end: 20050601
  2. LUNESTA [Suspect]
     Indication: INSOMNIA
     Dosage: 2 MG; HS; ORAL, 3 MG; HS; ORAL
     Route: 048
     Dates: start: 20050601
  3. COUMADIN [Concomitant]
  4. PREVACID [Concomitant]
  5. CELEBREX [Concomitant]
  6. PROPECIA [Concomitant]
  7. ZYRTEC [Concomitant]

REACTIONS (2)
  - DRUG INEFFECTIVE [None]
  - INSOMNIA [None]
